FAERS Safety Report 22061109 (Version 1)
Quarter: 2023Q1

REPORT INFORMATION
  Report Type: Spontaneous
  Country: GB (occurrence: GB)
  Receive Date: 20230303
  Receipt Date: 20230303
  Transmission Date: 20230417
  Serious: Yes (Hospitalization, Other)
  Sender: FDA-Public Use
  Company Number: GB-NORGINE LIMITED-NOR202300595

PATIENT
  Age: 6 Year
  Sex: Male
  Weight: 22.6 kg

DRUGS (5)
  1. RIFAXIMIN [Suspect]
     Active Substance: RIFAXIMIN
     Indication: Intestinal obstruction
     Route: 048
     Dates: start: 20220506, end: 2022
  2. RIFAXIMIN [Suspect]
     Active Substance: RIFAXIMIN
     Indication: Gastrointestinal bacterial overgrowth
     Route: 048
     Dates: start: 202206, end: 2022
  3. RIFAXIMIN [Suspect]
     Active Substance: RIFAXIMIN
     Route: 048
     Dates: start: 202209, end: 2022
  4. RIFAXIMIN [Suspect]
     Active Substance: RIFAXIMIN
     Route: 048
     Dates: start: 20221101
  5. METRONIDAZOLE [Concomitant]
     Active Substance: METRONIDAZOLE
     Indication: Product used for unknown indication

REACTIONS (11)
  - Aerophagia [Not Recovered/Not Resolved]
  - Condition aggravated [Not Recovered/Not Resolved]
  - Abdominal distension [Not Recovered/Not Resolved]
  - Condition aggravated [Not Recovered/Not Resolved]
  - Vomiting [Not Recovered/Not Resolved]
  - Constipation [Not Recovered/Not Resolved]
  - Flatulence [Not Recovered/Not Resolved]
  - Diarrhoea [Not Recovered/Not Resolved]
  - Drug ineffective for unapproved indication [Unknown]
  - Wrong technique in product usage process [Unknown]
  - Contraindicated product administered [Unknown]
